FAERS Safety Report 14525766 (Version 1)
Quarter: 2018Q1

REPORT INFORMATION
  Report Type: Spontaneous
  Country: US (occurrence: US)
  Receive Date: 20180211
  Receipt Date: 20180211
  Transmission Date: 20180509
  Serious: Yes (Disabling, Other)
  Sender: FDA-Public Use
  Company Number: None

PATIENT
  Age: 29 Year
  Sex: Female
  Weight: 56.25 kg

DRUGS (2)
  1. IBUPROFEN. [Suspect]
     Active Substance: IBUPROFEN
     Indication: MUSCLE STRAIN
     Dosage: ?          QUANTITY:100 TABLET(S);?
     Route: 048
     Dates: start: 20171225, end: 20171229
  2. ANTACIDS [Concomitant]
     Active Substance: UNSPECIFIED INGREDIENT

REACTIONS (5)
  - Ulcer [None]
  - Vomiting [None]
  - Abdominal pain upper [None]
  - Hypophagia [None]
  - Insomnia [None]

NARRATIVE: CASE EVENT DATE: 20180102
